FAERS Safety Report 8450409-4 (Version None)
Quarter: 2012Q2

REPORT INFORMATION
  Report Type: 
  Country: None (occurrence: None)
  Receive Date: 20120614
  Receipt Date: 20120614
  Transmission Date: 20120825
  Serious: Yes (Hospitalization)
  Sender: FDA-Public Use
  Company Number: None

PATIENT
  Age: 65 Year
  Sex: Male
  Weight: 94.5 kg

DRUGS (1)
  1. WARFARIN SODIUM [Suspect]
     Dosage: MG PO
     Route: 048
     Dates: start: 20120308

REACTIONS (5)
  - INTERNATIONAL NORMALISED RATIO INCREASED [None]
  - ARTERIOVENOUS FISTULA THROMBOSIS [None]
  - BLOOD CALCIUM DECREASED [None]
  - INCORRECT DOSE ADMINISTERED [None]
  - INTERNATIONAL NORMALISED RATIO DECREASED [None]
